FAERS Safety Report 7074686-X (Version None)
Quarter: 2010Q4

REPORT INFORMATION
  Report Type: 
  Country: None (occurrence: None)
  Receive Date: 20101029
  Receipt Date: 20101026
  Transmission Date: 20110411
  Serious: Yes (Hospitalization)
  Sender: FDA-Public Use
  Company Number: IT-WYE-H18363810

PATIENT
  Sex: Female
  Weight: 63 kg

DRUGS (8)
  1. TEMSIROLIMUS [Suspect]
     Indication: RENAL CELL CARCINOMA
     Dosage: NOT PROVIDED
  2. IRBESARTAN [Concomitant]
     Indication: HYPERTENSION
     Dosage: NOT PROVIDED
     Dates: start: 20000101
  3. LORAZEPAM [Concomitant]
     Dosage: NOT PROVIDED
     Dates: start: 20100810
  4. NEBIVOLOL [Concomitant]
     Indication: HYPERTENSION
     Dosage: NOT PROVIDED
     Dates: start: 20000101
  5. BARNIDIPINE [Concomitant]
     Indication: HYPERTENSION
     Dosage: NOT PROVIDED
     Dates: start: 20100913
  6. ACETYLSALICYLIC ACID SRT [Concomitant]
     Indication: PROPHYLAXIS
     Dosage: NOT PROVIDED
     Dates: start: 20000101
  7. BEVACIZUMAB, TEST ARTICLE IN TEMSIROLIMUS STUDY [Suspect]
     Indication: RENAL CELL CARCINOMA
     Route: 042
     Dates: start: 20100826, end: 20101007
  8. FUROSEMIDE [Concomitant]
     Indication: HYPERTENSION
     Dosage: NOT PROVIDED
     Dates: start: 20000101

REACTIONS (1)
  - NEPHROTIC SYNDROME [None]
